FAERS Safety Report 18567703 (Version 1)
Quarter: 2020Q4

REPORT INFORMATION
  Report Type: Spontaneous
  Country: MX (occurrence: MX)
  Receive Date: 20201202
  Receipt Date: 20201202
  Transmission Date: 20210114
  Serious: Yes (Other)
  Sender: FDA-Public Use
  Company Number: MX-ALVOGEN-2020-ALVOGEN-115346

PATIENT
  Age: 19 Year
  Sex: Female

DRUGS (1)
  1. LEVOTHYROXINE. [Suspect]
     Active Substance: LEVOTHYROXINE
     Indication: PRODUCT USE IN UNAPPROVED INDICATION

REACTIONS (6)
  - Hypomagnesaemia [Unknown]
  - Superior mesenteric artery syndrome [Unknown]
  - Blood thyroid stimulating hormone decreased [Unknown]
  - Weight decreased [Unknown]
  - Anaemia [Unknown]
  - Hypoalbuminaemia [Unknown]
